FAERS Safety Report 13296792 (Version 1)
Quarter: 2017Q1

REPORT INFORMATION
  Report Type: Report from Study
  Country: US (occurrence: US)
  Receive Date: 20170306
  Receipt Date: 20170306
  Transmission Date: 20170428
  Serious: No
  Sender: FDA-Public Use
  Company Number: US-ALEXION PHARMACEUTICALS INC.-A201702060

PATIENT
  Sex: Female

DRUGS (1)
  1. SOLIRIS [Suspect]
     Active Substance: ECULIZUMAB
     Indication: PAROXYSMAL NOCTURNAL HAEMOGLOBINURIA
     Route: 042

REACTIONS (7)
  - Fall [Unknown]
  - Oesophageal spasm [Unknown]
  - Asthenia [Unknown]
  - Abdominal pain [Unknown]
  - Chromaturia [Unknown]
  - Decreased appetite [Unknown]
  - Fatigue [Unknown]
